FAERS Safety Report 8176681-6 (Version None)
Quarter: 2012Q1

REPORT INFORMATION
  Report Type: 
  Country: None (occurrence: None)
  Receive Date: 20120301
  Receipt Date: 20120221
  Transmission Date: 20120608
  Serious: Yes (Other)
  Sender: FDA-Public Use
  Company Number: US-JNJFOC-20120211101

PATIENT
  Sex: Female
  Weight: 92.08 kg

DRUGS (11)
  1. FENTANYL-100 [Suspect]
     Indication: CHRONIC FATIGUE SYNDROME
     Dosage: NDC NUMBER- UNSPECIFIED
     Route: 062
     Dates: start: 20050101
  2. FENTANYL-100 [Suspect]
     Indication: FIBROMYALGIA
     Dosage: NDC NUMBER- UNSPECIFIED
     Route: 062
     Dates: start: 20050101
  3. B12 SHOT [Concomitant]
     Indication: CHRONIC FATIGUE SYNDROME
     Route: 058
  4. MAGNESIUM [Concomitant]
     Indication: NUTRITIONAL SUPPORT
     Route: 050
  5. FENTANYL-100 [Suspect]
     Indication: ARTHRALGIA
     Dosage: NDC NUMBER- UNSPECIFIED
     Route: 062
     Dates: start: 20050101
  6. FENTANYL-100 [Suspect]
     Indication: ARTHRALGIA
     Dosage: NDC NUMBER- UNKNOWN
     Route: 062
  7. THYROID SUPPLEMENTS [Concomitant]
     Indication: THYROIDECTOMY
     Route: 048
  8. EXTRA STRENGTH TYLENOL [Concomitant]
     Indication: PAIN
     Dosage: 500MG/ TABLET/ 2-500 MCG/ TWICE DAILY
     Route: 065
  9. FENTANYL-100 [Suspect]
     Indication: CHRONIC FATIGUE SYNDROME
     Dosage: NDC NUMBER- UNKNOWN
     Route: 062
  10. FENTANYL-100 [Suspect]
     Indication: FIBROMYALGIA
     Dosage: NDC NUMBER- UNKNOWN
     Route: 062
  11. VITAMIN [Concomitant]
     Indication: NUTRITIONAL SUPPORT
     Route: 048

REACTIONS (4)
  - SOMNOLENCE [None]
  - BREAST CANCER [None]
  - WITHDRAWAL SYNDROME [None]
  - PRODUCT QUALITY ISSUE [None]
